FAERS Safety Report 24614539 (Version 3)
Quarter: 2025Q2

REPORT INFORMATION
  Report Type: Spontaneous
  Country: PL (occurrence: PL)
  Receive Date: 20241113
  Receipt Date: 20250522
  Transmission Date: 20250716
  Serious: Yes (Hospitalization, Other)
  Sender: AUROBINDO
  Company Number: PL-AUROBINDO-AUR-APL-2024-054645

PATIENT
  Age: 32 Year
  Sex: Female

DRUGS (3)
  1. OLANZAPINE [Suspect]
     Active Substance: OLANZAPINE
     Indication: Bipolar disorder
     Route: 065
  2. CARBAMAZEPINE [Suspect]
     Active Substance: CARBAMAZEPINE
     Indication: Bipolar disorder
     Dosage: 300 MILLIGRAM, TWO TIMES A DAY
     Route: 065
  3. LAMOTRIGINE [Concomitant]
     Active Substance: LAMOTRIGINE
     Indication: Bipolar disorder
     Route: 065

REACTIONS (9)
  - Drug reaction with eosinophilia and systemic symptoms [Recovered/Resolved]
  - Hospitalisation [Unknown]
  - Rash erythematous [Recovering/Resolving]
  - Periorbital swelling [Recovering/Resolving]
  - Body temperature increased [Unknown]
  - Lymphadenopathy [Unknown]
  - Liver function test increased [Unknown]
  - Leukocytosis [Unknown]
  - Drug ineffective [Unknown]
